FAERS Safety Report 7833188-0 (Version None)
Quarter: 2011Q4

REPORT INFORMATION
  Report Type: 
  Country: None (occurrence: None)
  Receive Date: 20111024
  Receipt Date: 20111013
  Transmission Date: 20120403
  Serious: Yes (Other)
  Sender: FDA-Public Use
  Company Number: JP-BAYER-2011-092705

PATIENT
  Age: 67 Year
  Sex: Male
  Weight: 51 kg

DRUGS (4)
  1. RABEPRAZOLE SODIUM [Concomitant]
     Indication: GASTRITIS
     Dosage: DAILY DOSE 10 MG
     Route: 048
     Dates: start: 20110922
  2. NEXAVAR [Suspect]
     Indication: HEPATIC NEOPLASM MALIGNANT
     Dosage: 200 MG, BID
     Route: 048
     Dates: start: 20110922, end: 20110928
  3. NEXAVAR [Suspect]
     Indication: METASTASES TO BONE
  4. URSO 250 [Concomitant]
     Indication: HEPATITIS C
     Dosage: DAILY DOSE 300 MG
     Route: 048
     Dates: start: 20110922

REACTIONS (3)
  - PALPITATIONS [None]
  - HYPOAESTHESIA [None]
  - EXTRASYSTOLES [None]
